FAERS Safety Report 11339525 (Version 1)
Quarter: 2015Q3

REPORT INFORMATION
  Report Type: Spontaneous
  Country: JP (occurrence: JP)
  Receive Date: 20150805
  Receipt Date: 20150805
  Transmission Date: 20151125
  Serious: Yes (Other)
  Sender: FDA-Public Use
  Company Number: JP-009507513-1507JPN014586

PATIENT
  Age: 67 Year
  Sex: Male
  Weight: 65 kg

DRUGS (4)
  1. ZYVOX [Suspect]
     Active Substance: LINEZOLID
     Indication: PELVIC ABSCESS
     Dosage: TOTAL DAILY DOSE 1200 MG, DIVIDED DOSE FREQUENCY UNKNOWN
     Route: 042
     Dates: start: 20150507, end: 20150529
  2. CUBICIN [Suspect]
     Active Substance: DAPTOMYCIN
     Indication: ARTHRITIS BACTERIAL
  3. ZYVOX [Suspect]
     Active Substance: LINEZOLID
     Indication: ARTHRITIS BACTERIAL
  4. CUBICIN [Suspect]
     Active Substance: DAPTOMYCIN
     Indication: PELVIC ABSCESS
     Dosage: 350 MG, BID
     Route: 065
     Dates: start: 20150421, end: 20150507

REACTIONS (4)
  - Pancytopenia [Recovering/Resolving]
  - Haemoglobin decreased [Unknown]
  - Decreased appetite [Recovering/Resolving]
  - Rash [Recovered/Resolved]

NARRATIVE: CASE EVENT DATE: 2015
